FAERS Safety Report 6069786-7 (Version None)
Quarter: 2009Q1

REPORT INFORMATION
  Report Type: 
  Country: None (occurrence: None)
  Receive Date: 20090204
  Receipt Date: 20090204
  Transmission Date: 20090719
  Serious: Yes (Hospitalization)
  Sender: FDA-Public Use
  Company Number: None

PATIENT
  Age: 59 Year
  Sex: Female
  Weight: 53.978 kg

DRUGS (1)
  1. FOSAMAX [Suspect]
     Indication: OSTEOPOROSIS PROPHYLAXIS
     Dosage: ONE PILL WEEKLY PO
     Route: 048
     Dates: start: 19951022, end: 20071015

REACTIONS (5)
  - FALL [None]
  - FEMUR FRACTURE [None]
  - GAIT DISTURBANCE [None]
  - LOSS OF CONTROL OF LEGS [None]
  - MEDICAL DEVICE PAIN [None]
